FAERS Safety Report 17057127 (Version 2)
Quarter: 2019Q4

REPORT INFORMATION
  Report Type: Report from Study
  Country: GB (occurrence: GB)
  Receive Date: 20191121
  Receipt Date: 20191204
  Transmission Date: 20200122
  Serious: Yes (Other)
  Sender: FDA-Public Use
  Company Number: GB-ACCORD-161770

PATIENT
  Age: 83 Year
  Sex: Female

DRUGS (3)
  1. MITOMYCIN. [Suspect]
     Active Substance: MITOMYCIN
     Indication: GLAUCOMA
     Dosage: 0.2X0.2 (MG/ML) X VOLUME (ML) AT TIME OF XEN-45 SURGERY
  2. BEVACIZUMAB. [Concomitant]
     Active Substance: BEVACIZUMAB
     Dosage: INTRACAMERAL INJECTION OF BEVACIZUMAB
  3. FLUOROURACIL. [Concomitant]
     Active Substance: FLUOROURACIL

REACTIONS (3)
  - Off label use [Unknown]
  - Choroidal detachment [Unknown]
  - Conjunctival filtering bleb leak [Unknown]
